FAERS Safety Report 9612952 (Version 2)
Quarter: 2013Q4

REPORT INFORMATION
  Report Type: Spontaneous
  Country: CO (occurrence: CO)
  Receive Date: 20131010
  Receipt Date: 20131010
  Transmission Date: 20140711
  Serious: Yes (Other)
  Sender: FDA-Public Use
  Company Number: CO-PFIZER INC-2013265446

PATIENT
  Sex: Male

DRUGS (6)
  1. ELIQUIS [Suspect]
     Indication: ATRIAL FIBRILLATION
     Dosage: 5 MG, 2X/DAY
     Route: 048
     Dates: start: 20130815
  2. ALDACTONE [Suspect]
     Indication: ATRIAL FIBRILLATION
     Dosage: HALF A TABLET OF 25MG, 1X/DAY
     Route: 048
     Dates: end: 20130913
  3. CARVEDILOL [Concomitant]
     Indication: CARDIAC DISORDER
     Dosage: 6.25 MG, 1X/DAY
     Route: 048
  4. OMEPRAZOL [Concomitant]
     Dosage: 20 MG, 1X/DAY
     Route: 048
  5. ENALAPRIL [Concomitant]
     Indication: PROPHYLAXIS
     Dosage: HALF A TABLET OF 5MG, 1X/DAY
     Route: 048
  6. FERROUS SULFATE [Concomitant]
     Indication: ANAEMIA
     Dosage: 100 MG, 1X/DAY
     Route: 048

REACTIONS (4)
  - Hypotension [Recovering/Resolving]
  - Haemoglobin decreased [Not Recovered/Not Resolved]
  - Malaise [Not Recovered/Not Resolved]
  - Fatigue [Not Recovered/Not Resolved]
